FAERS Safety Report 18526918 (Version 3)
Quarter: 2020Q4

REPORT INFORMATION
  Report Type: Report from Study
  Country: CN (occurrence: CN)
  Receive Date: 20201120
  Receipt Date: 20201207
  Transmission Date: 20210114
  Serious: Yes (Death, Hospitalization)
  Sender: FDA-Public Use
  Company Number: CN-UCBSA-2020046416

PATIENT
  Sex: Male
  Weight: 65 kg

DRUGS (1)
  1. ROTIGOTINE PD [Suspect]
     Active Substance: ROTIGOTINE
     Indication: PARKINSON^S DISEASE
     Dosage: 6 MILLIGRAM, ONCE DAILY (QD)
     Route: 062
     Dates: start: 2020, end: 202005

REACTIONS (1)
  - Lung disorder [Fatal]

NARRATIVE: CASE EVENT DATE: 2020
